FAERS Safety Report 6184534-8 (Version None)
Quarter: 2009Q2

REPORT INFORMATION
  Report Type: 
  Country: None (occurrence: None)
  Receive Date: 20090508
  Receipt Date: 20090427
  Transmission Date: 20091009
  Serious: Yes (Other)
  Sender: FDA-Public Use
  Company Number: IL-AMGEN-QUU344638

PATIENT
  Sex: Female

DRUGS (6)
  1. NEULASTIM [Suspect]
     Indication: CHEMOTHERAPY
     Route: 058
  2. RITUXIMAB [Concomitant]
     Route: 042
  3. CYCLOPHOSPHAMIDE [Concomitant]
  4. VINCRISTINE [Concomitant]
  5. PREDNISONE [Concomitant]
  6. DOXORUBICIN HYDROCHLORIDE [Concomitant]

REACTIONS (2)
  - ANAPHYLACTIC REACTION [None]
  - PRESYNCOPE [None]
